FAERS Safety Report 6769487-3 (Version None)
Quarter: 2010Q2

REPORT INFORMATION
  Report Type: 
  Country: None (occurrence: None)
  Receive Date: 20100615
  Receipt Date: 20100604
  Transmission Date: 20101027
  Serious: Yes (Hospitalization)
  Sender: FDA-Public Use
  Company Number: US-BAXTER-2010BH012648

PATIENT
  Age: 78 Year
  Sex: Female
  Weight: 72 kg

DRUGS (20)
  1. PLACEBO [Suspect]
     Indication: DEMENTIA ALZHEIMER'S TYPE
     Route: 042
     Dates: start: 20100427, end: 20100427
  2. IMMUNE GLOBULIN IV NOS [Suspect]
     Route: 042
     Dates: start: 20100413, end: 20100413
  3. PLACEBO [Suspect]
     Route: 042
     Dates: start: 20100330, end: 20100330
  4. EXELON [Concomitant]
     Indication: DEMENTIA ALZHEIMER'S TYPE
     Route: 062
     Dates: start: 20081111
  5. NAMENDA [Concomitant]
     Indication: DEMENTIA ALZHEIMER'S TYPE
     Route: 048
     Dates: start: 20080130
  6. COREG [Concomitant]
     Indication: HYPERTENSION
     Route: 048
     Dates: start: 20080130
  7. LISINOPRIL [Concomitant]
     Indication: HYPERTENSION
     Route: 048
     Dates: start: 20090217
  8. SIMVASTATIN [Concomitant]
     Indication: HYPERCHOLESTEROLAEMIA
     Route: 048
     Dates: start: 20080130
  9. HUMULIN R [Concomitant]
     Indication: DIABETES MELLITUS
     Route: 030
     Dates: start: 20080625
  10. PEPCID [Concomitant]
     Indication: GASTROOESOPHAGEAL REFLUX DISEASE
     Route: 048
     Dates: start: 20070620
  11. TYLENOL [Concomitant]
     Indication: ARTHRALGIA
     Route: 048
     Dates: start: 20080807
  12. ULTRAM [Concomitant]
     Indication: ARTHRALGIA
     Route: 048
     Dates: start: 20080807
  13. EFFEXOR XR [Concomitant]
     Indication: DEPRESSION
     Route: 048
     Dates: start: 20081111
  14. XYZAL [Concomitant]
     Indication: SEASONAL ALLERGY
     Route: 048
     Dates: start: 20080527
  15. FLUTICASONE [Concomitant]
     Indication: NASAL CONGESTION
     Route: 045
     Dates: start: 20080130
  16. MULTI-VITAMINS [Concomitant]
     Indication: ROUTINE HEALTH MAINTENANCE
     Route: 048
     Dates: start: 20080130
  17. ASPIRINE [Concomitant]
     Indication: ROUTINE HEALTH MAINTENANCE
     Route: 048
     Dates: start: 20080130
  18. GLUCERNA ^ABBOTT^ [Concomitant]
     Indication: ROUTINE HEALTH MAINTENANCE
     Route: 048
     Dates: start: 20090217
  19. NEBIVOLOL HCL [Concomitant]
     Indication: HYPERTENSION
     Route: 048
     Dates: start: 20090701
  20. VALSARTAN [Concomitant]
     Indication: HYPERTENSION
     Route: 048
     Dates: start: 20100407

REACTIONS (2)
  - ATRIAL FIBRILLATION [None]
  - CARDIAC FAILURE CONGESTIVE [None]
